FAERS Safety Report 5331966-3 (Version None)
Quarter: 2007Q2

REPORT INFORMATION
  Report Type: 
  Country: None (occurrence: None)
  Receive Date: 20070518
  Receipt Date: 20070504
  Transmission Date: 20071010
  Serious: Yes (Death, Hospitalization, Other)
  Sender: FDA-Public Use
  Company Number: 2007SP001731

PATIENT
  Age: 73 Year
  Sex: Male
  Weight: 79.3795 kg

DRUGS (15)
  1. XOPENEX [Suspect]
     Dosage: 0.63 MG/3ML; QD; INHALATION
     Route: 055
     Dates: start: 20060317
  2. HYDROCHLOROTHIAZIDE [Concomitant]
  3. MAGNOATE [Concomitant]
  4. FLOMAX [Concomitant]
  5. PAXIL [Concomitant]
  6. ELAVIL [Concomitant]
  7. ATROVENT [Concomitant]
  8. PREDNISONE TAB [Concomitant]
  9. SLOW-K [Concomitant]
  10. BUSPAR [Concomitant]
  11. MAGNESIUM SULFATE [Concomitant]
  12. PERCOCET [Concomitant]
  13. TYLENOL W/ CODEINE [Concomitant]
  14. XANAX [Concomitant]
  15. ARFORMOTEROL [Concomitant]

REACTIONS (14)
  - ARTHRALGIA [None]
  - CHRONIC OBSTRUCTIVE PULMONARY DISEASE [None]
  - COMPUTERISED TOMOGRAM ABNORMAL [None]
  - CONDITION AGGRAVATED [None]
  - DYSARTHRIA [None]
  - DYSPNOEA [None]
  - GROIN PAIN [None]
  - HAEMOPTYSIS [None]
  - IMMOBILE [None]
  - MUSCULOSKELETAL PAIN [None]
  - NON-SMALL CELL LUNG CANCER [None]
  - OSTEOARTHRITIS [None]
  - PAIN IN EXTREMITY [None]
  - PULMONARY FUNCTION TEST DECREASED [None]
